FAERS Safety Report 5157741-0 (Version None)
Quarter: 2006Q4

REPORT INFORMATION
  Report Type: 
  Country: None (occurrence: None)
  Receive Date: 20061127
  Receipt Date: 20061110
  Transmission Date: 20070319
  Serious: Yes (Hospitalization)
  Sender: FDA-Public Use
  Company Number: 2006PK02317

PATIENT
  Age: 16 Year
  Sex: Male

DRUGS (3)
  1. ROPIVACAIN [Suspect]
     Indication: POSTOPERATIVE ANALGESIA
     Dosage: 8 TO 16 MG FOR 19 HOURS AND SOME BOLUS ADMINISTRATION WITH A TOTAL DOSE OF 26 MG WITHIN 19 HOURS
     Route: 053
  2. PREDNISOLONE [Concomitant]
     Indication: IMMUNOSUPPRESSION
  3. SUFENTANIL CITRATE [Concomitant]
     Dosage: 4 TO 8 UG/H AND SOME BOLUS ADMINISTRATION OF A TOTAL OF 13 UG WITHIN 19 HOURS

REACTIONS (2)
  - CONVULSION [None]
  - ENCEPHALOPATHY [None]
